FAERS Safety Report 4759194-0 (Version None)
Quarter: 2005Q3

REPORT INFORMATION
  Report Type: 
  Country: None (occurrence: None)
  Receive Date: 20050831
  Receipt Date: 20050812
  Transmission Date: 20060218
  Serious: Yes (Death, Other)
  Sender: FDA-Public Use
  Company Number: EWC050845304

PATIENT
  Age: 57 Year
  Sex: Male

DRUGS (1)
  1. XIGRIS [Suspect]
     Indication: SEPSIS

REACTIONS (4)
  - BRADYCARDIA [None]
  - CONVULSION [None]
  - HAEMORRHAGE INTRACRANIAL [None]
  - MYDRIASIS [None]
